FAERS Safety Report 5336567-9 (Version None)
Quarter: 2007Q2

REPORT INFORMATION
  Report Type: 
  Country: None (occurrence: None)
  Receive Date: 20070524
  Receipt Date: 20070509
  Transmission Date: 20071010
  Serious: Yes (Hospitalization)
  Sender: FDA-Public Use
  Company Number: DSA_29713_2007

PATIENT
  Age: 83 Year
  Sex: Male

DRUGS (10)
  1. HERBESSER (HERBESSER) (NOT SPECIFIED) [Suspect]
     Dosage: 200 MG QD ORAL
     Route: 048
     Dates: start: 20070306, end: 20070307
  2. LIPITOR [Suspect]
     Indication: HYPERCHOLESTEROLAEMIA
     Dosage: 5 MG QD ORAL
     Route: 048
     Dates: start: 20070213
  3. ITOROL [Concomitant]
  4. GASTER [Concomitant]
  5. FRANDOL [Concomitant]
  6. TICLOPIDINE HCL [Concomitant]
  7. ASPIRIN [Concomitant]
  8. RENIVACE [Concomitant]
  9. DEPAS [Concomitant]
  10. AMARYL [Concomitant]

REACTIONS (3)
  - DRUG INTERACTION [None]
  - SINUS ARREST [None]
  - SINUS BRADYCARDIA [None]
